FAERS Safety Report 4814622-7 (Version None)
Quarter: 2005Q4

REPORT INFORMATION
  Report Type: 
  Country: None (occurrence: None)
  Receive Date: 20051028
  Receipt Date: 20050905
  Transmission Date: 20060501
  Serious: Yes (Disabling)
  Sender: FDA-Public Use
  Company Number: FR-GLAXOSMITHKLINE-B0393078A

PATIENT
  Age: 53 Year
  Sex: Female
  Weight: 64 kg

DRUGS (5)
  1. AVANDIA [Suspect]
     Route: 048
     Dates: start: 20040501, end: 20040715
  2. GLUCOPHAGE [Concomitant]
     Dosage: 1850MG PER DAY
     Route: 048
  3. COAPROVEL [Concomitant]
     Dosage: 1UNIT PER DAY
     Route: 048
  4. MEDIATOR [Concomitant]
     Dosage: 150MG TWICE PER DAY
     Route: 048
  5. HAVLANE [Concomitant]
     Dosage: 1UNIT PER DAY
     Route: 048

REACTIONS (4)
  - ANAEMIA [None]
  - ASTHENIA [None]
  - DEPRESSION [None]
  - WEIGHT DECREASED [None]
